FAERS Safety Report 21882774 (Version 1)
Quarter: 2023Q1

REPORT INFORMATION
  Report Type: Spontaneous
  Country: FR (occurrence: FR)
  Receive Date: 20230119
  Receipt Date: 20230119
  Transmission Date: 20230418
  Serious: Yes (Congenital Anomaly)
  Sender: FDA-Public Use
  Company Number: FR-AFSSAPS-PV20221632

PATIENT
  Age: 1 Year
  Sex: Male
  Weight: 2.8 kg

DRUGS (1)
  1. SERTRALINE [Suspect]
     Active Substance: SERTRALINE HYDROCHLORIDE
     Indication: Depression
     Dosage: UNK
     Route: 064
     Dates: start: 20191211

REACTIONS (1)
  - Motor developmental delay [Recovering/Resolving]

NARRATIVE: CASE EVENT DATE: 20220701
